FAERS Safety Report 17043811 (Version 1)
Quarter: 2019Q4

REPORT INFORMATION
  Report Type: Spontaneous
  Country: US (occurrence: US)
  Receive Date: 20191017
  Receipt Date: 20191017
  Transmission Date: 20200122
  Serious: Yes (Hospitalization)
  Sender: FDA-Public Use
  Company Number: None

PATIENT
  Age: 77 Year
  Sex: Male
  Weight: 72.12 kg

DRUGS (1)
  1. PALIPERIDONE. [Suspect]
     Active Substance: PALIPERIDONE
     Indication: SCHIZOPHRENIA
     Route: 030
     Dates: start: 20190416, end: 20190513

REACTIONS (3)
  - Dysphagia [None]
  - Asthenia [None]
  - Parkinsonism [None]

NARRATIVE: CASE EVENT DATE: 20190523
